FAERS Safety Report 5892751-7 (Version None)
Quarter: 2008Q3

REPORT INFORMATION
  Report Type: 
  Country: None (occurrence: None)
  Receive Date: 20080923
  Receipt Date: 20080911
  Transmission Date: 20090109
  Serious: Yes (Other)
  Sender: FDA-Public Use
  Company Number: FR-ROCHE-581056

PATIENT
  Sex: Female
  Weight: 68 kg

DRUGS (1)
  1. XELODA [Suspect]
     Indication: COLORECTAL CANCER
     Dosage: DOSING REGIMEN: 4 TABLETS
     Route: 048
     Dates: start: 20070301, end: 20070301

REACTIONS (2)
  - ANGIOEDEMA [None]
  - URTICARIA [None]
